FAERS Safety Report 6062909-5 (Version None)
Quarter: 2009Q1

REPORT INFORMATION
  Report Type: 
  Country: None (occurrence: None)
  Receive Date: 20090203
  Receipt Date: 20090126
  Transmission Date: 20090719
  Serious: Yes (Death, Hospitalization, Other)
  Sender: FDA-Public Use
  Company Number: DE-JNJFOC-20090106107

PATIENT
  Age: 68 Year
  Sex: Female

DRUGS (5)
  1. REMICADE [Suspect]
     Route: 042
  2. REMICADE [Suspect]
     Indication: COLITIS ULCERATIVE
     Route: 042
  3. CORTISONE [Concomitant]
  4. CYCLOSPORINE [Concomitant]
  5. AZATHIOPRINE [Concomitant]

REACTIONS (13)
  - ACUTE HEPATIC FAILURE [None]
  - CHOLELITHIASIS [None]
  - COLON CANCER [None]
  - DEATH [None]
  - ILEUS [None]
  - LARGE INTESTINE PERFORATION [None]
  - LEUKOPENIA [None]
  - METASTASES TO LIVER [None]
  - METASTASES TO LUNG [None]
  - METASTASES TO PERITONEUM [None]
  - PERITONITIS [None]
  - RENAL FAILURE ACUTE [None]
  - URINARY TRACT INFECTION [None]
